FAERS Safety Report 14494808 (Version 3)
Quarter: 2018Q1

REPORT INFORMATION
  Report Type: Spontaneous
  Country: DE (occurrence: DE)
  Receive Date: 20180206
  Receipt Date: 20180220
  Transmission Date: 20180509
  Serious: Yes (Other)
  Sender: FDA-Public Use
  Company Number: DE-PFIZER INC-2018049018

PATIENT
  Age: 69 Year
  Sex: Male
  Weight: 78 kg

DRUGS (12)
  1. HEPARIN NATRIUM RATIOPHARM [Suspect]
     Active Substance: HEPARIN SODIUM
     Dosage: 10000 IU, DAILY
     Dates: start: 20170828, end: 20170828
  2. RAMIPRIL. [Concomitant]
     Active Substance: RAMIPRIL
     Dosage: 2.5 MG EVERY 12 HOURS
  3. ATORVASTATIN [Concomitant]
     Active Substance: ATORVASTATIN
     Dosage: 40 MILLIGRAM DAILY; 0-0-1
  4. TRANEXAMIC ACID. [Suspect]
     Active Substance: TRANEXAMIC ACID
     Dosage: 10 ML, UNK
     Dates: start: 20170828, end: 20170828
  5. PREGABALIN. [Concomitant]
     Active Substance: PREGABALIN
     Dosage: 50 MG, 1X/DAY
  6. HEPARIN NATRIUM RATIOPHARM [Suspect]
     Active Substance: HEPARIN SODIUM
     Dosage: 10000 IU, DAILY
     Dates: start: 20170828, end: 20170828
  7. CLOPIDOGREL [Concomitant]
     Active Substance: CLOPIDOGREL BISULFATE
     Dosage: 75 MILLIGRAM DAILY; 1-0-0
  8. HEPARIN NATRIUM RATIOPHARM [Suspect]
     Active Substance: HEPARIN SODIUM
     Dosage: 10000 IU, DAILY
     Dates: start: 20170828, end: 20170828
  9. PANTOPRAZOLE [Concomitant]
     Active Substance: PANTOPRAZOLE
     Dosage: 40 MILLIGRAM DAILY; 1-0-0
  10. AMLODIPINE [Concomitant]
     Active Substance: AMLODIPINE BESYLATE
     Dosage: 2.5 MG, 1X/DAY
  11. HEPARIN NATRIUM RATIOPHARM [Suspect]
     Active Substance: HEPARIN SODIUM
     Dosage: 2.5 MG, EVERY DAY
  12. DREISAVIT [Concomitant]
     Dosage: 1 DF, 1X/DAY

REACTIONS (2)
  - Blood pressure decreased [Unknown]
  - Ventricular tachyarrhythmia [Unknown]

NARRATIVE: CASE EVENT DATE: 2017
